FAERS Safety Report 15400483 (Version 1)
Quarter: 2018Q3

REPORT INFORMATION
  Report Type: Spontaneous
  Country: FR (occurrence: FR)
  Receive Date: 20180919
  Receipt Date: 20180919
  Transmission Date: 20181010
  Serious: Yes (Other)
  Sender: FDA-Public Use
  Company Number: FR-ASTRAZENECA-2018SF19019

PATIENT
  Sex: Female

DRUGS (1)
  1. LYNPARZA [Suspect]
     Active Substance: OLAPARIB
     Indication: NEOPLASM MALIGNANT
     Dosage: 8 CAPSULES IN THE MORNING AND 6 CAPSULES IN THE EVENING
     Route: 048
     Dates: start: 201801

REACTIONS (2)
  - Off label use [Unknown]
  - Recurrent cancer [Unknown]
